FAERS Safety Report 8308179-6 (Version None)
Quarter: 2012Q2

REPORT INFORMATION
  Report Type: 
  Country: None (occurrence: None)
  Receive Date: 20120424
  Receipt Date: 20120418
  Transmission Date: 20120825
  Serious: Yes (Other)
  Sender: FDA-Public Use
  Company Number: US-BAYER-2012-038811

PATIENT
  Age: 23 Year
  Sex: Female
  Weight: 52.608 kg

DRUGS (2)
  1. YAZ [Suspect]
     Dosage: UNK
  2. LEVOTHYROXINE SODIUM [Concomitant]
     Dosage: UNK
     Dates: start: 20080226

REACTIONS (1)
  - DEEP VEIN THROMBOSIS [None]
